FAERS Safety Report 17136698 (Version 1)
Quarter: 2019Q4

REPORT INFORMATION
  Report Type: Spontaneous
  Country: CN (occurrence: CN)
  Receive Date: 20191210
  Receipt Date: 20191210
  Transmission Date: 20200122
  Serious: Yes (Other)
  Sender: FDA-Public Use
  Company Number: CN-009507513-1912CHN003105

PATIENT
  Age: 69 Year
  Sex: Male
  Weight: 76 kg

DRUGS (6)
  1. LIPUSU [Suspect]
     Active Substance: PACLITAXEL
     Indication: CHEMOTHERAPY
     Dosage: 300 MG (6TH COURSE)
     Route: 041
     Dates: start: 20191128, end: 20191128
  2. AVASTIN [Suspect]
     Active Substance: BEVACIZUMAB
     Indication: CHEMOTHERAPY
     Dosage: 1000 MG (6TH COURSE)
     Dates: start: 20191128, end: 20191128
  3. DEXTROSE. [Concomitant]
     Active Substance: DEXTROSE
     Dosage: 500 ML
     Route: 041
     Dates: start: 20191128, end: 20191128
  4. KEYTRUDA [Suspect]
     Active Substance: PEMBROLIZUMAB
     Indication: CHEMOTHERAPY
     Dosage: 200 MG (6TH COURSE), QW3
     Route: 041
     Dates: start: 20191128, end: 20191128
  5. SODIUM CHLORIDE. [Concomitant]
     Active Substance: SODIUM CHLORIDE
     Dosage: 250 ML
     Route: 041
     Dates: start: 20191128, end: 20191128
  6. SODIUM CHLORIDE. [Concomitant]
     Active Substance: SODIUM CHLORIDE
     Dosage: 100 ML
     Route: 041
     Dates: start: 20191128, end: 20191128

REACTIONS (2)
  - White blood cell count decreased [Recovering/Resolving]
  - Platelet count decreased [Recovering/Resolving]

NARRATIVE: CASE EVENT DATE: 20191130
